FAERS Safety Report 8687716 (Version 3)
Quarter: 2013Q4

REPORT INFORMATION
  Report Type: Spontaneous
  Country: US (occurrence: US)
  Receive Date: 20120727
  Receipt Date: 20131101
  Transmission Date: 20140711
  Serious: No
  Sender: FDA-Public Use
  Company Number: US-009507513-2012SP027826

PATIENT
  Age: 69 Year
  Sex: Male
  Weight: 121.56 kg

DRUGS (2)
  1. CLARITIN-D-24 [Suspect]
     Indication: RHINORRHOEA
     Dosage: 5 MG, QPM
     Route: 048
     Dates: start: 20120402
  2. CLARITIN-D-24 [Suspect]
     Indication: MEDICAL OBSERVATION
     Dosage: 5 MG, QPM
     Route: 048
     Dates: start: 20120402

REACTIONS (2)
  - Drug ineffective [Recovered/Resolved]
  - Inappropriate schedule of drug administration [Recovered/Resolved]
